FAERS Safety Report 17671564 (Version 6)
Quarter: 2023Q1

REPORT INFORMATION
  Report Type: Report from Study
  Country: US (occurrence: None)
  Receive Date: 20200415
  Receipt Date: 20230207
  Transmission Date: 20230417
  Serious: Yes (Hospitalization)
  Sender: FDA-Public Use
  Company Number: US-ROCHE-2344214

PATIENT
  Age: 55 Year
  Sex: Male
  Weight: 88.2 kg

DRUGS (22)
  1. VENETOCLAX [Suspect]
     Active Substance: VENETOCLAX
     Indication: Chronic lymphocytic leukaemia
     Dosage: DAYS 1-7 CYCLE 3?FURTHER DOSE ON 13/MAY/2019
     Route: 048
     Dates: start: 20190415
  2. VENETOCLAX [Suspect]
     Active Substance: VENETOCLAX
     Dosage: DAYS 8-14, CYCLE 3
     Route: 048
     Dates: start: 20190415
  3. VENETOCLAX [Suspect]
     Active Substance: VENETOCLAX
     Dosage: DAYS 15-21, CYCLE 3
     Route: 048
     Dates: start: 20190415
  4. VENETOCLAX [Suspect]
     Active Substance: VENETOCLAX
     Dosage: DAYS 22-28, CYCLE 3
     Route: 048
     Dates: start: 20190415
  5. VENETOCLAX [Suspect]
     Active Substance: VENETOCLAX
     Dosage: DAYS 1-28, CYCLES 4-14?TOTAL DOSE ADMINISTERED THIS COURSE: 400MG, LAST ADMINISTERED DATE:25/MAR/202
     Route: 048
     Dates: start: 20190415
  6. OBINUTUZUMAB [Suspect]
     Active Substance: OBINUTUZUMAB
     Indication: Chronic lymphocytic leukaemia
     Dosage: DAY 1, CYCLE 1?FURTHER DOSE ON 13/MAY/2019
     Route: 042
     Dates: start: 20190415, end: 20190415
  7. OBINUTUZUMAB [Suspect]
     Active Substance: OBINUTUZUMAB
     Dosage: DAY 2, CYCLE 1
     Route: 042
  8. OBINUTUZUMAB [Suspect]
     Active Substance: OBINUTUZUMAB
     Dosage: DAY 8, CYCLE 1
     Route: 042
  9. OBINUTUZUMAB [Suspect]
     Active Substance: OBINUTUZUMAB
     Dosage: DAY 15, CYCLE 1
     Route: 042
  10. OBINUTUZUMAB [Suspect]
     Active Substance: OBINUTUZUMAB
     Dosage: DAY 1, CYCLES 2-6 TOTAL DOSE ADMINISTERED THIS COURSE: 1000 MG, LAST ADMINISTERED DATE: 01/OCT/2019
     Route: 042
  11. OBINUTUZUMAB [Suspect]
     Active Substance: OBINUTUZUMAB
     Dosage: DOSE INTERRUPTED AFTER A GRADE 2 INFUSION REACTION. HE RESTARTED TREATMENT ON 19/APR/2019, TOTAL DOS
     Route: 042
     Dates: start: 20190415, end: 20190415
  12. IBRUTINIB [Suspect]
     Active Substance: IBRUTINIB
     Indication: Chronic lymphocytic leukaemia
     Dosage: ON DAYS 1-28, CYCLES 1-19?FURTHER DOSE ON13/MAY/2019
     Route: 048
     Dates: start: 20190415
  13. IBRUTINIB [Suspect]
     Active Substance: IBRUTINIB
     Dosage: TOTAL DOSE ADMINISTERED THIS COURSE: 420MG, LAST ADMINISTERED DATE: 25/MAR/2020
     Route: 048
     Dates: start: 20190513
  14. AZITHROMYCIN [Concomitant]
     Active Substance: AZITHROMYCIN
     Dosage: ON DAY 1 AND 250 MG ON SUBSEQUENT 4 DAYS
  15. PLAQUENIL [Concomitant]
     Active Substance: HYDROXYCHLOROQUINE SULFATE
     Dosage: 400 MG BID ON DAY 1 AND 200 MG BID FOR SUBSEQUENT 4 DAYS
  16. TOCILIZUMAB [Concomitant]
     Active Substance: TOCILIZUMAB
     Route: 065
     Dates: start: 20200404
  17. ACYCLOVIR [Concomitant]
     Active Substance: ACYCLOVIR
     Route: 048
  18. ADVIL [Concomitant]
     Active Substance: IBUPROFEN
     Route: 048
  19. ALLOPURINOL [Concomitant]
     Active Substance: ALLOPURINOL
  20. BACTRIM DS [Concomitant]
     Active Substance: SULFAMETHOXAZOLE\TRIMETHOPRIM
     Dosage: 1(800-160 MG) TABLET
     Route: 048
  21. ZANTAC [Concomitant]
     Active Substance: RANITIDINE HYDROCHLORIDE
     Route: 048
  22. ACETAMINOPHEN [Concomitant]
     Active Substance: ACETAMINOPHEN
     Dosage: 2 TABLET (325 MG) ORAL
     Route: 048

REACTIONS (12)
  - Hyperkalaemia [Recovered/Resolved]
  - Leukocytosis [Unknown]
  - Infusion related reaction [Unknown]
  - Blood lactate dehydrogenase increased [Unknown]
  - Hyperphosphataemia [Unknown]
  - COVID-19 [Recovered/Resolved]
  - Nausea [Unknown]
  - Diarrhoea [Recovered/Resolved]
  - Upper respiratory tract infection [Unknown]
  - Cough [Recovered/Resolved]
  - Pyrexia [Unknown]
  - Fatigue [Recovered/Resolved]

NARRATIVE: CASE EVENT DATE: 20190415
